FAERS Safety Report 16714312 (Version 1)
Quarter: 2019Q3

REPORT INFORMATION
  Report Type: Spontaneous
  Country: US (occurrence: US)
  Receive Date: 20190819
  Receipt Date: 20190819
  Transmission Date: 20191004
  Serious: Yes (Hospitalization, Disabling, Other)
  Sender: FDA-Public Use
  Company Number: US-BAYER-2019-149105

PATIENT
  Age: 22 Year
  Sex: Female

DRUGS (1)
  1. KYLEENA [Suspect]
     Active Substance: LEVONORGESTREL
     Indication: CONTRACEPTION
     Dosage: 17.5 MCG/24HR, CONT
     Route: 015
     Dates: start: 201710

REACTIONS (7)
  - Ruptured ectopic pregnancy [Recovered/Resolved with Sequelae]
  - Abdominal pain [None]
  - Nausea [None]
  - Drug ineffective [None]
  - Ectopic pregnancy with contraceptive device [None]
  - Pelvic haemorrhage [None]
  - Malaise [None]

NARRATIVE: CASE EVENT DATE: 20190804
